FAERS Safety Report 12320602 (Version 1)
Quarter: 2016Q2

REPORT INFORMATION
  Report Type: Report from Study
  Country: TH (occurrence: TH)
  Receive Date: 20160429
  Receipt Date: 20160429
  Transmission Date: 20160815
  Serious: Yes (Death, Other)
  Sender: FDA-Public Use
  Company Number: PHHO2014TH020117

PATIENT
  Age: 59 Year
  Sex: Female
  Weight: 50.5 kg

DRUGS (5)
  1. AZACITIDINE. [Suspect]
     Active Substance: AZACITIDINE
     Indication: MYELODYSPLASTIC SYNDROME
     Dosage: 75 MG/M2, CYCLIC
     Route: 058
     Dates: start: 20140721, end: 20140729
  2. BLINDED ELTROMBOPAG [Suspect]
     Active Substance: ELTROMBOPAG
     Indication: MYELODYSPLASTIC SYNDROME
     Dosage: CODE NOT BROKEN
     Route: 048
     Dates: start: 20140721, end: 20140831
  3. BLINDED NO TREATMENT RECEIVED [Suspect]
     Active Substance: INVESTIGATIONAL PRODUCT
     Indication: MYELODYSPLASTIC SYNDROME
     Dosage: CODE NOT BROKEN
     Route: 048
     Dates: start: 20140721, end: 20140831
  4. BLINDED PLACEBO [Suspect]
     Active Substance: INVESTIGATIONAL PRODUCT
     Indication: MYELODYSPLASTIC SYNDROME
     Dosage: CODE NOT BROKEN
     Route: 048
     Dates: start: 20140721, end: 20140831
  5. BLINDED ELTROMBOPAG [Suspect]
     Active Substance: ELTROMBOPAG
     Indication: MYELODYSPLASTIC SYNDROME
     Dosage: CODE NOT BROKEN
     Route: 048
     Dates: start: 20140721, end: 20140831

REACTIONS (2)
  - Malignant neoplasm progression [Fatal]
  - Acute respiratory failure [Fatal]

NARRATIVE: CASE EVENT DATE: 20140928
